FAERS Safety Report 9128338 (Version 1)
Quarter: 2013Q1

REPORT INFORMATION
  Report Type: Report from Study
  Country: US (occurrence: US)
  Receive Date: 20130228
  Receipt Date: 20130228
  Transmission Date: 20140127
  Serious: No
  Sender: FDA-Public Use
  Company Number: US-ABBOTT-13P-163-1040910-00

PATIENT
  Age: 64 Year
  Sex: Male
  Weight: 122.58 kg

DRUGS (7)
  1. ANDROGEL [Suspect]
     Indication: BLOOD TESTOSTERONE DECREASED
     Dosage: 2 PUMPS DAILYL
     Route: 061
     Dates: start: 201210, end: 20130118
  2. ANDROGEL [Suspect]
     Dosage: 4 PUMPS DAILY
     Route: 061
     Dates: start: 20130118
  3. PRAVASTATIN [Concomitant]
     Indication: BLOOD CHOLESTEROL INCREASED
     Dosage: UNKNOWN
  4. CITIRIZINE [Concomitant]
     Indication: SEASONAL ALLERGY
     Dosage: UNKNOWN
  5. SULINDAC [Concomitant]
     Indication: ARTHRALGIA
     Dosage: UNKNOWN
  6. TRAMADOL [Concomitant]
     Indication: ARTHRALGIA
     Dosage: UNKNOWN
  7. LEVOTHYROXINE [Concomitant]
     Indication: HYPOTHYROIDISM
     Dosage: UNKNOWN

REACTIONS (2)
  - Blood testosterone decreased [Not Recovered/Not Resolved]
  - Drug ineffective [Not Recovered/Not Resolved]
